FAERS Safety Report 15829302 (Version 2)
Quarter: 2020Q1

REPORT INFORMATION
  Report Type: Spontaneous
  Country: US (occurrence: US)
  Receive Date: 20190115
  Receipt Date: 20200122
  Transmission Date: 20200409
  Serious: No
  Sender: FDA-Public Use
  Company Number: US-ALLERGAN-1856729US

PATIENT
  Sex: Female

DRUGS (5)
  1. RESTASIS [Suspect]
     Active Substance: CYCLOSPORINE
     Indication: DRY EYE
     Dosage: 2 GTT, BID
     Route: 047
     Dates: start: 201811
  2. XALATAN [Concomitant]
     Active Substance: LATANOPROST
     Indication: GLAUCOMA
     Dosage: UNK UNK, QPM
     Route: 047
  3. GEL DROPS [Concomitant]
     Indication: DRY EYE
     Dosage: UNK, QHS
     Route: 047
  4. COSOPT [Concomitant]
     Active Substance: DORZOLAMIDE HYDROCHLORIDE\TIMOLOL MALEATE
     Indication: GLAUCOMA
     Dosage: UNK UNK, BID
     Route: 047
  5. SYSTANE (POLYETHYLENE GLYCOL 400\PROPYLENE GLYCOL) [Concomitant]
     Active Substance: POLYETHYLENE GLYCOL 400\PROPYLENE GLYCOL
     Indication: DRY EYE
     Dosage: UNK (ALL DAY LONG)
     Route: 047

REACTIONS (5)
  - Incorrect dose administered [Unknown]
  - Visual impairment [Unknown]
  - Eye disorder [Not Recovered/Not Resolved]
  - Dizziness [Unknown]
  - Product container issue [Unknown]

NARRATIVE: CASE EVENT DATE: 2018
